FAERS Safety Report 19072315 (Version 1)
Quarter: 2021Q1

REPORT INFORMATION
  Report Type: Spontaneous
  Country: US (occurrence: US)
  Receive Date: 20210330
  Receipt Date: 20210330
  Transmission Date: 20210420
  Serious: No
  Sender: FDA-Public Use
  Company Number: US-ELI_LILLY_AND_COMPANY-US202103013464

PATIENT
  Age: 44 Year
  Sex: Female

DRUGS (3)
  1. PENICILLIN G [BENZYLPENICILLIN POTASSIUM] [Concomitant]
     Active Substance: PENICILLIN G POTASSIUM
     Indication: PHARYNGITIS STREPTOCOCCAL
  2. VERZENIO [Suspect]
     Active Substance: ABEMACICLIB
     Indication: BREAST CANCER METASTATIC
     Dosage: 50 MG, BID
     Route: 048
     Dates: start: 2019
  3. LETROZOLE. [Concomitant]
     Active Substance: LETROZOLE
     Indication: BREAST CANCER

REACTIONS (1)
  - Pharyngitis streptococcal [Not Recovered/Not Resolved]

NARRATIVE: CASE EVENT DATE: 20210318
